FAERS Safety Report 24293260 (Version 1)
Quarter: 2024Q3

REPORT INFORMATION
  Report Type: Spontaneous
  Country: US (occurrence: None)
  Receive Date: 20240906
  Receipt Date: 20240906
  Transmission Date: 20241016
  Serious: No
  Sender: DOMPE FARMACEUTICI
  Company Number: US-FARMAPROD-202308-202312-3678

PATIENT
  Sex: Male

DRUGS (7)
  1. OXERVATE [Suspect]
     Active Substance: CENEGERMIN-BKBJ
     Indication: Neurotrophic keratopathy
     Route: 047
     Dates: start: 20231204
  2. ARTIFICIAL TEARS [Concomitant]
  3. FAMOTIDINE [Concomitant]
     Active Substance: FAMOTIDINE
  4. FUROSEMIDE [Concomitant]
     Active Substance: FUROSEMIDE
  5. PANTOPRAZOLE SODIUM [Concomitant]
     Active Substance: PANTOPRAZOLE SODIUM
  6. VITAMIN D [Concomitant]
     Active Substance: VITAMIN D NOS
  7. VITAMINS [Concomitant]
     Active Substance: VITAMINS

REACTIONS (1)
  - Eye pain [Unknown]
